FAERS Safety Report 18147183 (Version 1)
Quarter: 2020Q3

REPORT INFORMATION
  Report Type: Spontaneous
  Country: PL (occurrence: PL)
  Receive Date: 20200813
  Receipt Date: 20200813
  Transmission Date: 20201103
  Serious: Yes (Other)
  Sender: FDA-Public Use
  Company Number: PL-BAUSCH-BL-2020-022562

PATIENT
  Age: 50 Year
  Sex: Male

DRUGS (5)
  1. DEXAMETHASONE. [Suspect]
     Active Substance: DEXAMETHASONE
     Indication: PLASMA CELL MYELOMA
     Route: 065
     Dates: start: 200909, end: 201001
  2. MELPHALAN. [Concomitant]
     Active Substance: MELPHALAN
     Indication: PLASMA CELL MYELOMA
     Dosage: 200 (UNSPECIFIED UNIT)
     Route: 065
     Dates: start: 201003
  3. MELPHALAN. [Concomitant]
     Active Substance: MELPHALAN
     Dosage: 200 (UNSPECIFIED UNIT)
     Route: 065
     Dates: start: 201006
  4. CYCLOPHOSPHAMIDE. [Suspect]
     Active Substance: CYCLOPHOSPHAMIDE
     Indication: PLASMA CELL MYELOMA
     Route: 065
     Dates: start: 200909, end: 201001
  5. THALIDOMIDE [Suspect]
     Active Substance: THALIDOMIDE
     Indication: PLASMA CELL MYELOMA
     Route: 048
     Dates: start: 200909, end: 201001

REACTIONS (2)
  - Infection [Unknown]
  - Viral pericarditis [Unknown]
